FAERS Safety Report 9557809 (Version 1)
Quarter: 2013Q3

REPORT INFORMATION
  Report Type: Spontaneous
  Country: RU (occurrence: RU)
  Receive Date: 20130926
  Receipt Date: 20130926
  Transmission Date: 20140515
  Serious: Yes (Other)
  Sender: FDA-Public Use
  Company Number: RU-TEVA-432861ISR

PATIENT
  Age: 49 Year
  Sex: Male

DRUGS (1)
  1. DYNAMICO [Suspect]
     Route: 048
     Dates: start: 20130916, end: 20130916

REACTIONS (2)
  - Haematemesis [Unknown]
  - Nausea [Recovered/Resolved]
